FAERS Safety Report 7778963-6 (Version None)
Quarter: 2011Q3

REPORT INFORMATION
  Report Type: 
  Country: None (occurrence: None)
  Receive Date: 20110926
  Receipt Date: 20110913
  Transmission Date: 20111222
  Serious: No
  Sender: FDA-Public Use
  Company Number: US-B.I. PHARMACEUTICALS,INC./RIDGEFIELD-2011-BP-22140BP

PATIENT
  Sex: Male

DRUGS (9)
  1. LISINOPRIL [Concomitant]
     Indication: HYPERTENSION
     Dates: start: 20010101
  2. PRADAXA [Suspect]
     Indication: ATRIAL FIBRILLATION
     Dosage: 300 MG
     Route: 048
     Dates: start: 20110701
  3. METOPROLOL TARTRATE [Concomitant]
     Indication: HYPERTENSION
     Dates: start: 20010101
  4. DIAZEPAM [Concomitant]
     Indication: ANXIETY
     Dosage: 5 MG
     Route: 048
     Dates: start: 20010101
  5. POTASSIUM [Concomitant]
     Indication: BLOOD POTASSIUM DECREASED
     Dosage: 8 MEQ
     Route: 048
     Dates: start: 20010101
  6. NORTRIPTYLINE HCL [Concomitant]
     Indication: ANTIDEPRESSANT THERAPY
     Dates: start: 19910101
  7. OXYCODONE [Concomitant]
     Indication: ARTHRITIS
     Dates: start: 20090101
  8. FUROSEMIDE [Concomitant]
     Indication: OEDEMA
     Dosage: 40 MG
     Route: 048
     Dates: start: 20010101
  9. SIMVASTATIN [Concomitant]
     Indication: BLOOD CHOLESTEROL INCREASED
     Route: 048
     Dates: start: 20000101

REACTIONS (1)
  - PAIN IN EXTREMITY [None]
